FAERS Safety Report 16805500 (Version 1)
Quarter: 2019Q3

REPORT INFORMATION
  Report Type: Spontaneous
  Country: US (occurrence: US)
  Receive Date: 20190913
  Receipt Date: 20190913
  Transmission Date: 20191005
  Serious: Yes (Other)
  Sender: FDA-Public Use
  Company Number: US-BECTON DICKINSON-2019BDN00317

PATIENT

DRUGS (4)
  1. CHLORAPREP WITH TINT [Suspect]
     Active Substance: CHLORHEXIDINE GLUCONATE\ISOPROPYL ALCOHOL
     Indication: INFECTION PROPHYLAXIS
     Route: 061
  2. LIDOCAINE. [Suspect]
     Active Substance: LIDOCAINE
     Dosage: 5 ML
  3. POWERPICC PROVENA SOLO 5F DL W/ GUARDIVA [Suspect]
     Active Substance: DEVICE
  4. CHLORAPREP [Suspect]
     Active Substance: CHLORHEXIDINE GLUCONATE\ISOPROPYL ALCOHOL
     Indication: INFECTION PROPHYLAXIS
     Route: 061

REACTIONS (2)
  - Complication of device insertion [Unknown]
  - Foreign body [Unknown]
